FAERS Safety Report 23663188 (Version 1)
Quarter: 2024Q1

REPORT INFORMATION
  Report Type: Spontaneous
  Country: PT (occurrence: PT)
  Receive Date: 20240322
  Receipt Date: 20240322
  Transmission Date: 20240410
  Serious: Yes (Other)
  Sender: FDA-Public Use
  Company Number: PT-BAXTER-2024BAX015035

PATIENT
  Age: 61 Year
  Sex: Female

DRUGS (17)
  1. CYCLOPHOSPHAMIDE [Suspect]
     Active Substance: CYCLOPHOSPHAMIDE
     Indication: Invasive breast carcinoma
     Dosage: UNK, START DATE: MAY-2013, STOP DATE: SEP-2013, 3 CYCLES
     Route: 065
  2. DOXORUBICIN [Suspect]
     Active Substance: DOXORUBICIN
     Indication: Invasive breast carcinoma
     Dosage: UNK, START DATE: MAY-2013, STOP DATE: SEP-2013, 3 CYCLES
     Route: 065
  3. PACLITAXEL [Suspect]
     Active Substance: PACLITAXEL
     Indication: Invasive breast carcinoma
     Dosage: UNK, START DATE: MAY-2013, STOP DATE: SEP-2013, 6 CYCLES
     Route: 065
  4. TALZENNA [Suspect]
     Active Substance: TALAZOPARIB TOSYLATE
     Indication: Breast cancer metastatic
     Dosage: 1 MG, 1X/DAY, START DATE: JUL-2022, STOP DATE: AUG-2022, FIRST REGIMEN
     Route: 065
  5. TALZENNA [Suspect]
     Active Substance: TALAZOPARIB TOSYLATE
     Dosage: 0.75 MG, 1X/DAY, START DATE: AUG-2022, STOP DATE: SEP-2022, SECOND REGIMEN
     Route: 065
  6. TALZENNA [Suspect]
     Active Substance: TALAZOPARIB TOSYLATE
     Dosage: 0.5 MG, 1X/DAY, START DATE: SEP-2022, THIRD REGIMEN, ONGOING
     Route: 065
  7. TAMOXIFEN [Suspect]
     Active Substance: TAMOXIFEN
     Indication: Invasive breast carcinoma
     Dosage: UNK, START DATE: 2013, STOP DATE: OCT-2018, ADJUVANT HARMONE THERAPY, SUSPENDED AT THE WILL OF THE P
     Route: 065
  8. GOSERELIN [Suspect]
     Active Substance: GOSERELIN
     Indication: Breast cancer metastatic
     Dosage: UNK, START DATE: NOV-2020, STOP DATE: OCT-2021, 1ST LINE OF PALLIATIVE TREATMENT
     Route: 065
  9. LETROZOLE [Suspect]
     Active Substance: LETROZOLE
     Indication: Breast cancer metastatic
     Dosage: UNK, START DATE: NOV-2020, STOP DATE: APR-2022, 1ST LINE OF PALLIATIVE TREATMENT
     Route: 065
  10. RIBOCICLIB [Suspect]
     Active Substance: RIBOCICLIB
     Indication: Breast cancer metastatic
     Dosage: UNK, START DATE: NOV-2020, STOP DATE: APR-2022, 1ST LINE OF PALLIATIVE TREATMENT. DOSE REDUCTION TO
     Route: 065
  11. RIBOCICLIB [Suspect]
     Active Substance: RIBOCICLIB
     Dosage: UNK, START DATE: NOV-2020, STOP DATE: APR-2022, FIRST LINE OF PALLIATIVE TREATMENT. DOSE REDUCTION T
     Route: 065
  12. ABACAVIR SULFATE\LAMIVUDINE [Concomitant]
     Active Substance: ABACAVIR SULFATE\LAMIVUDINE
     Dosage: UNK
     Route: 065
  13. RALTEGRAVIR [Concomitant]
     Active Substance: RALTEGRAVIR
     Dosage: UNK
     Route: 065
  14. PRAVASTATIN [Concomitant]
     Active Substance: PRAVASTATIN
     Dosage: UNK
     Route: 065
  15. BUPRENORPHINE [Concomitant]
     Active Substance: BUPRENORPHINE
     Dosage: UNK
     Route: 065
  16. FENTANYL [Concomitant]
     Active Substance: FENTANYL\FENTANYL CITRATE
     Dosage: UNK
     Route: 065
  17. PREGABALIN [Concomitant]
     Active Substance: PREGABALIN
     Dosage: UNK
     Route: 065

REACTIONS (7)
  - Metastases to bone [Unknown]
  - Metastases to liver [Unknown]
  - Metastases to lung [Unknown]
  - Febrile neutropenia [Recovered/Resolved]
  - Haematotoxicity [Unknown]
  - Neutropenia [Recovered/Resolved]
  - Neoplasm progression [Unknown]
